FAERS Safety Report 9989017 (Version 2)
Quarter: 2014Q1

REPORT INFORMATION
  Report Type: Report from Study
  Country: US (occurrence: US)
  Receive Date: 20140310
  Receipt Date: 20140310
  Transmission Date: 20141002
  Serious: No
  Sender: FDA-Public Use
  Company Number: US-ABBVIE-13P-163-1108059-00

PATIENT
  Age: 16 Year
  Sex: Female

DRUGS (8)
  1. HUMIRA [Suspect]
     Indication: JUVENILE IDIOPATHIC ARTHRITIS
     Route: 058
     Dates: start: 20130603
  2. DICLOFENAC [Concomitant]
     Indication: JUVENILE IDIOPATHIC ARTHRITIS
     Route: 048
  3. PRILOSEC [Concomitant]
     Indication: GASTROOESOPHAGEAL REFLUX DISEASE
     Dosage: 20 MG DAILY
     Route: 048
  4. CLARITIN [Concomitant]
     Indication: HYPERSENSITIVITY
     Route: 048
  5. DEXAMETHASONE [Concomitant]
     Indication: PRODUCT USED FOR UNKNOWN INDICATION
  6. ORTHO-TRICYCLEN LOW DOSE [Concomitant]
     Indication: CONTRACEPTION
     Dosage: DAILY
  7. SINGULAR [Concomitant]
     Indication: ASTHMA
  8. VOLTAREN [Concomitant]
     Indication: PAIN

REACTIONS (1)
  - Injection site pain [Recovered/Resolved]
